FAERS Safety Report 7042245-0 (Version None)
Quarter: 2010Q4

REPORT INFORMATION
  Report Type: 
  Country: None (occurrence: None)
  Receive Date: 20101013
  Receipt Date: 20101004
  Transmission Date: 20110411
  Serious: Yes (Other)
  Sender: FDA-Public Use
  Company Number: US-JNJFOC-20101001282

PATIENT
  Sex: Female
  Weight: 79.38 kg

DRUGS (7)
  1. TOPAMAX [Suspect]
     Indication: MIGRAINE PROPHYLAXIS
     Route: 048
  2. TOPAMAX [Suspect]
     Route: 048
  3. TOPAMAX [Suspect]
     Route: 048
  4. TOPIRAMATE [Suspect]
     Indication: MIGRAINE PROPHYLAXIS
     Route: 048
  5. LYRICA [Suspect]
     Indication: NEURALGIA
     Route: 048
  6. EFFEXOR [Concomitant]
     Indication: DEPRESSION
     Route: 048
  7. CRESTOR [Concomitant]
     Indication: CARDIAC DISORDER
     Route: 048

REACTIONS (7)
  - CARDIAC DISORDER [None]
  - DRUG INEFFECTIVE [None]
  - GINGIVAL PAIN [None]
  - HEADACHE [None]
  - HYPOHIDROSIS [None]
  - NEUROPATHY PERIPHERAL [None]
  - VISUAL IMPAIRMENT [None]
